FAERS Safety Report 5929548-5 (Version None)
Quarter: 2008Q4

REPORT INFORMATION
  Report Type: 
  Country: None (occurrence: None)
  Receive Date: 20081024
  Receipt Date: 20081020
  Transmission Date: 20090506
  Serious: Yes (Hospitalization)
  Sender: FDA-Public Use
  Company Number: B0542446A

PATIENT
  Age: 25 Year
  Sex: Male

DRUGS (1)
  1. AMOXICILLIN TRIHYDRATE [Suspect]
     Dosage: 1G PER DAY
     Route: 048
     Dates: start: 20080808, end: 20080808

REACTIONS (4)
  - ANGIOEDEMA [None]
  - PALATAL OEDEMA [None]
  - RESPIRATORY DISORDER [None]
  - URTICARIA [None]
